FAERS Safety Report 6040966-X (Version None)
Quarter: 2009Q1

REPORT INFORMATION
  Report Type: 
  Country: None (occurrence: None)
  Receive Date: 20090116
  Receipt Date: 20080714
  Transmission Date: 20090719
  Serious: No
  Sender: FDA-Public Use
  Company Number: US-BRISTOL-MYERS SQUIBB COMPANY-14262950

PATIENT
  Age: 85 Year
  Sex: Male

DRUGS (5)
  1. ABILIFY [Suspect]
     Indication: AGITATION
     Route: 042
     Dates: start: 20080710
  2. CIPRO [Concomitant]
  3. DURAGESIC-100 [Concomitant]
  4. SLOW-MAG [Concomitant]
  5. TYLENOL (CAPLET) [Concomitant]

REACTIONS (2)
  - MEDICATION ERROR [None]
  - NO ADVERSE EVENT [None]
